FAERS Safety Report 8138825-1 (Version None)
Quarter: 2012Q1

REPORT INFORMATION
  Report Type: 
  Country: None (occurrence: None)
  Receive Date: 20120215
  Receipt Date: 20110613
  Transmission Date: 20120608
  Serious: No
  Sender: FDA-Public Use
  Company Number: US-ASTRAZENECA-2011SE36068

PATIENT
  Sex: Female

DRUGS (4)
  1. FELODIPINE [Suspect]
     Indication: BLOOD PRESSURE
     Route: 048
  2. ARIMIDEX [Concomitant]
  3. ZOCOR [Concomitant]
  4. NOLVADEX [Concomitant]

REACTIONS (8)
  - DYSGEUSIA [None]
  - PARAESTHESIA [None]
  - HYPOAESTHESIA [None]
  - SOMNOLENCE [None]
  - STOMATITIS [None]
  - HEADACHE [None]
  - SKIN IRRITATION [None]
  - WRONG TECHNIQUE IN DRUG USAGE PROCESS [None]
